FAERS Safety Report 4358759-8 (Version None)
Quarter: 2004Q2

REPORT INFORMATION
  Report Type: 
  Country: None (occurrence: None)
  Receive Date: 20040517
  Receipt Date: 20040510
  Transmission Date: 20050107
  Serious: Yes (Other)
  Sender: FDA-Public Use
  Company Number: 200414927GDDC

PATIENT
  Sex: Male
  Weight: 88 kg

DRUGS (2)
  1. LANTUS [Suspect]
     Indication: DIABETES MELLITUS INSULIN-DEPENDENT
     Route: 058
     Dates: start: 20030601, end: 20040416
  2. HYPURIN NEUTRAL [Concomitant]
     Route: 058

REACTIONS (4)
  - DEPRESSION [None]
  - MYALGIA [None]
  - PERSONALITY CHANGE [None]
  - SOMNOLENCE [None]
